FAERS Safety Report 13158936 (Version 1)
Quarter: 2017Q1

REPORT INFORMATION
  Report Type: Spontaneous
  Country: US (occurrence: US)
  Receive Date: 20170127
  Receipt Date: 20170127
  Transmission Date: 20170428
  Serious: No
  Sender: FDA-Public Use
  Company Number: US-ENDO PHARMACEUTICALS INC.-2016-006649

PATIENT
  Age: 7 Decade
  Sex: Female

DRUGS (4)
  1. BELBUCA [Suspect]
     Active Substance: BUPRENORPHINE HYDROCHLORIDE
     Route: 065
     Dates: start: 2016, end: 2016
  2. CYMBALTA [Concomitant]
     Active Substance: DULOXETINE HYDROCHLORIDE
     Indication: PRODUCT USED FOR UNKNOWN INDICATION
  3. BELBUCA [Suspect]
     Active Substance: BUPRENORPHINE HYDROCHLORIDE
     Route: 065
     Dates: start: 2016
  4. BELBUCA [Suspect]
     Active Substance: BUPRENORPHINE HYDROCHLORIDE
     Route: 065
     Dates: start: 2016, end: 2016

REACTIONS (1)
  - Abnormal dreams [Recovering/Resolving]

NARRATIVE: CASE EVENT DATE: 2016
